FAERS Safety Report 12569695 (Version 1)
Quarter: 2016Q3

REPORT INFORMATION
  Report Type: Spontaneous
  Country: US (occurrence: None)
  Receive Date: 20160718
  Receipt Date: 20160718
  Transmission Date: 20161109
  Serious: No
  Sender: FDA-Public Use
  Company Number: None

PATIENT
  Age: 34 Year
  Sex: Female
  Weight: 51.71 kg

DRUGS (2)
  1. HYOSCYAMINE. [Concomitant]
     Active Substance: HYOSCYAMINE
  2. LAMOTRIGINE 25 MG TABLET CADISTA PHARMAC [Suspect]
     Active Substance: LAMOTRIGINE
     Indication: BIPOLAR DISORDER
     Route: 048
     Dates: start: 20160706, end: 20160715

REACTIONS (4)
  - Overdose [None]
  - Lymphadenopathy [None]
  - Rash [None]
  - Lymph node pain [None]

NARRATIVE: CASE EVENT DATE: 20160713
